FAERS Safety Report 7494119-9 (Version None)
Quarter: 2011Q2

REPORT INFORMATION
  Report Type: 
  Country: None (occurrence: None)
  Receive Date: 20110520
  Receipt Date: 20110517
  Transmission Date: 20111010
  Serious: Yes (Other)
  Sender: FDA-Public Use
  Company Number: US-PFIZER INC-2011106147

PATIENT
  Sex: Female
  Weight: 56.236 kg

DRUGS (6)
  1. PERCOCET [Concomitant]
     Indication: PAIN
     Dosage: 10 MG/ 325 MG
     Route: 048
  2. SKELAXIN [Concomitant]
     Indication: MUSCLE DISORDER
     Dosage: 800 MG, 3X/DAY
     Route: 048
  3. VALTREX [Concomitant]
     Indication: HERPES VIRUS INFECTION
     Dosage: UNK
  4. PREMPRO [Concomitant]
     Indication: IRRITABLE BOWEL SYNDROME
     Dosage: 20 MG, AS NEEDED
     Route: 048
  5. DIFLUCAN [Suspect]
     Indication: FUNGAL INFECTION
     Dosage: UNK
     Dates: start: 19920101
  6. DIFLUCAN [Suspect]
     Dosage: UNK

REACTIONS (1)
  - BIPOLAR DISORDER [None]
